FAERS Safety Report 16210889 (Version 1)
Quarter: 2019Q2

REPORT INFORMATION
  Report Type: Other
  Country: PL (occurrence: PL)
  Receive Date: 20190418
  Receipt Date: 20190418
  Transmission Date: 20190711
  Serious: Yes (Life-Threatening)
  Sender: FDA-Public Use
  Company Number: PL-DENTSPLY-2019SCDP000237

PATIENT
  Age: 2 Month
  Sex: Male
  Weight: 5.5 kg

DRUGS (1)
  1. LIDOCAINE. [Suspect]
     Active Substance: LIDOCAINE
     Indication: LOCAL ANAESTHESIA
     Dosage: 4.8 MG, ONE ADMINISTRATION
     Route: 061
     Dates: start: 20161006

REACTIONS (1)
  - Laryngospasm [Unknown]

NARRATIVE: CASE EVENT DATE: 20161006
